FAERS Safety Report 14701399 (Version 2)
Quarter: 2018Q3

REPORT INFORMATION
  Report Type: Spontaneous
  Country: US (occurrence: US)
  Receive Date: 20180330
  Receipt Date: 20180703
  Transmission Date: 20181010
  Serious: No
  Sender: FDA-Public Use
  Company Number: US-PFIZER INC-2018126572

PATIENT
  Age: 59 Year
  Sex: Female

DRUGS (1)
  1. XELJANZ XR [Suspect]
     Active Substance: TOFACITINIB CITRATE
     Dosage: 11 MG, DAILY
     Route: 048

REACTIONS (9)
  - Decreased interest [Unknown]
  - Hypertension [Unknown]
  - Cardiac ventricular disorder [Unknown]
  - Depression [Unknown]
  - Fatigue [Unknown]
  - Peripheral swelling [Unknown]
  - Arthritis [Unknown]
  - Influenza [Unknown]
  - Myalgia [Unknown]

NARRATIVE: CASE EVENT DATE: 20180326
